FAERS Safety Report 9470708 (Version 1)
Quarter: 2013Q3

REPORT INFORMATION
  Report Type: Spontaneous
  Country: US (occurrence: US)
  Receive Date: 20130822
  Receipt Date: 20130822
  Transmission Date: 20140515
  Serious: No
  Sender: FDA-Public Use
  Company Number: US-PFIZER INC-2013241764

PATIENT
  Age: 49 Year
  Sex: Female

DRUGS (9)
  1. EFFEXOR [Suspect]
     Indication: DEPRESSION
     Dosage: 75 MG DAILY
     Route: 048
     Dates: start: 2009
  2. SAVELLA [Interacting]
     Indication: FIBROMYALGIA
     Dosage: 12.5 MG DAILY
     Route: 048
     Dates: start: 201307, end: 201307
  3. AMITRIPTYLINE [Concomitant]
     Dosage: UNK
  4. SIMVASTATIN [Concomitant]
     Dosage: UNK
  5. NEXIUM [Concomitant]
     Dosage: UNK
  6. MAXALT [Concomitant]
     Indication: MIGRAINE
     Dosage: UNK
  7. FLEXERIL [Concomitant]
     Dosage: UNK
  8. TRAMADOL [Concomitant]
     Dosage: UNK
  9. METFORMIN [Concomitant]
     Dosage: UNK

REACTIONS (2)
  - Drug interaction [Recovered/Resolved]
  - Headache [Recovered/Resolved]
